FAERS Safety Report 11197395 (Version 1)
Quarter: 2015Q2

REPORT INFORMATION
  Report Type: Report from Study
  Country: NL (occurrence: NL)
  Receive Date: 20150617
  Receipt Date: 20150617
  Transmission Date: 20150821
  Serious: Yes (Death, Hospitalization, Other)
  Sender: FDA-Public Use
  Company Number: NL-GLAXOSMITHKLINE-NL2015GSK082328

PATIENT
  Sex: Male

DRUGS (6)
  1. PREDNISONE. [Suspect]
     Active Substance: PREDNISONE
     Indication: MANTLE CELL LYMPHOMA
     Dosage: UNK
     Dates: start: 20100817
  2. ONDANSETRON HYDROCHLORIDE. [Suspect]
     Active Substance: ONDANSETRON HYDROCHLORIDE
     Indication: CONSTIPATION
     Dosage: UNK
  3. RITUXIMAB [Suspect]
     Active Substance: RITUXIMAB
     Indication: MANTLE CELL LYMPHOMA
     Dosage: UNK
     Dates: start: 20100817
  4. VINCRISTINE [Suspect]
     Active Substance: VINCRISTINE
     Indication: MANTLE CELL LYMPHOMA
     Dosage: UNK
     Dates: start: 20100817
  5. CYCLOPHOSPHAMIDE. [Suspect]
     Active Substance: CYCLOPHOSPHAMIDE
     Indication: MANTLE CELL LYMPHOMA
     Dosage: UNK
     Dates: start: 20100817
  6. DOXORUBICIN [Suspect]
     Active Substance: DOXORUBICIN
     Indication: MANTLE CELL LYMPHOMA
     Dosage: UNK
     Dates: start: 20150817

REACTIONS (4)
  - Cardiac failure [Fatal]
  - Constipation [Unknown]
  - Abdominal pain [Unknown]
  - Febrile neutropenia [Unknown]
